FAERS Safety Report 8032680-6 (Version None)
Quarter: 2012Q1

REPORT INFORMATION
  Report Type: 
  Country: None (occurrence: None)
  Receive Date: 20120110
  Receipt Date: 20111024
  Transmission Date: 20120608
  Serious: No
  Sender: FDA-Public Use
  Company Number: US-COVIDIEN/TYCO HEALTHCARE/MALLINCKRODT-T201102416

PATIENT
  Sex: Female

DRUGS (3)
  1. PEPCID [Concomitant]
     Dosage: 20 MG, UNK
     Route: 042
  2. BARIUM [Concomitant]
     Dosage: 2%, UNK
     Route: 048
  3. OPTIRAY 160 [Suspect]
     Indication: COMPUTERISED TOMOGRAM
     Dosage: 125 ML, SINGLE
     Route: 042
     Dates: start: 20111018, end: 20111018

REACTIONS (3)
  - SNEEZING [None]
  - WHEEZING [None]
  - DYSPNOEA [None]
